FAERS Safety Report 20923774 (Version 1)
Quarter: 2022Q2

REPORT INFORMATION
  Report Type: Spontaneous
  Country: CN (occurrence: None)
  Receive Date: 20220607
  Receipt Date: 20220607
  Transmission Date: 20220721
  Serious: Yes (Other)
  Sender: FDA-Public Use
  Company Number: 2022A207312

PATIENT
  Age: 60 Year
  Sex: Male
  Weight: 50 kg

DRUGS (2)
  1. IMFINZI [Suspect]
     Active Substance: DURVALUMAB
     Indication: Non-small cell lung cancer stage III
     Dosage: 500MG/CYCLE
     Route: 042
     Dates: start: 20210606, end: 20210630
  2. PLATINUM [Concomitant]
     Active Substance: PLATINUM

REACTIONS (1)
  - Immune-mediated lung disease [Unknown]
